FAERS Safety Report 4320870-5 (Version None)
Quarter: 2004Q1

REPORT INFORMATION
  Report Type: 
  Country: None (occurrence: None)
  Receive Date: 20040318
  Receipt Date: 20040308
  Transmission Date: 20041129
  Serious: Yes (Death)
  Sender: FDA-Public Use
  Company Number: 281

PATIENT
  Age: 69 Year
  Sex: Male
  Weight: 90.7194 kg

DRUGS (2)
  1. AMIODARONE HCL [Suspect]
     Indication: ATRIAL FIBRILLATION
     Dosage: DOSE UNKNOWN - ORAL
     Route: 048
     Dates: start: 20030224, end: 20030618
  2. AMIODARONE HCL [Suspect]
     Indication: ATRIAL FIBRILLATION
     Dosage: DOSE UNKNOWN - ORAL
     Route: 048
     Dates: start: 20030619, end: 20040105

REACTIONS (9)
  - ANOREXIA [None]
  - CHEST DISCOMFORT [None]
  - DIFFUSE ALVEOLAR DAMAGE [None]
  - DRUG TOXICITY [None]
  - LUNG INFILTRATION [None]
  - MUSCLE TIGHTNESS [None]
  - PULMONARY FIBROSIS [None]
  - PYREXIA [None]
  - THROAT IRRITATION [None]
